FAERS Safety Report 13526313 (Version 1)
Quarter: 2017Q2

REPORT INFORMATION
  Report Type: Spontaneous
  Country: US (occurrence: US)
  Receive Date: 20170508
  Receipt Date: 20170508
  Transmission Date: 20170830
  Serious: No
  Sender: FDA-Public Use
  Company Number: None

PATIENT
  Age: 51 Year
  Sex: Female
  Weight: 58.5 kg

DRUGS (1)
  1. LYRICA [Suspect]
     Active Substance: PREGABALIN
     Indication: FIBROMYALGIA
     Dosage: ?          QUANTITY:1 CAPSULE(S); TWICE A DAY ORAL?
     Route: 048
     Dates: start: 20170430

REACTIONS (5)
  - Nausea [None]
  - Somnolence [None]
  - Dizziness [None]
  - Thirst [None]
  - Disorientation [None]

NARRATIVE: CASE EVENT DATE: 20170507
